FAERS Safety Report 9668237 (Version 1)
Quarter: 2013Q4

REPORT INFORMATION
  Report Type: Spontaneous
  Country: NZ (occurrence: NZ)
  Receive Date: 20131104
  Receipt Date: 20131104
  Transmission Date: 20140711
  Serious: Yes (Other)
  Sender: FDA-Public Use
  Company Number: PHHY2013NZ122669

PATIENT
  Age: 52 Year
  Sex: Female

DRUGS (3)
  1. PARACETAMOL [Suspect]
     Indication: BACK PAIN
     Dosage: 4 G, UNK
  2. PARACETAMOL [Suspect]
     Dosage: 4 G, UNK
  3. ALCOHOL [Concomitant]

REACTIONS (4)
  - Liver function test abnormal [Recovering/Resolving]
  - Tachycardia [Unknown]
  - Tremor [Unknown]
  - Abdominal tenderness [Unknown]
